FAERS Safety Report 21626842 (Version 1)
Quarter: 2022Q4

REPORT INFORMATION
  Report Type: Spontaneous
  Country: US (occurrence: None)
  Receive Date: 20221121
  Receipt Date: 20221121
  Transmission Date: 20230113
  Serious: No
  Sender: FDA-Public Use
  Company Number: None

PATIENT
  Age: 81 Year
  Sex: Female
  Weight: 46.63 kg

DRUGS (23)
  1. IMATINIB [Suspect]
     Active Substance: IMATINIB
     Indication: Chronic myeloid leukaemia
     Dosage: FREQUENCY : DAILY;?
     Route: 048
  2. AMITRIPTYLINE [Concomitant]
     Active Substance: AMITRIPTYLINE
  3. ASOCORBIC ACID [Concomitant]
  4. BUTALBITAL-ASA-CAFFEINE [Concomitant]
  5. CALCIUM CARBONATE [Concomitant]
     Active Substance: CALCIUM CARBONATE
  6. CLONAZEPAM [Concomitant]
     Active Substance: CLONAZEPAM
  7. CRANBERRY [Concomitant]
     Active Substance: CRANBERRY
  8. DEXTROAMPHETAMINE [Concomitant]
     Active Substance: DEXTROAMPHETAMINE
  9. LYSINE [Concomitant]
     Active Substance: LYSINE
  10. LATANOPROST [Concomitant]
     Active Substance: LATANOPROST
  11. LEVOTHYROXINE [Concomitant]
     Active Substance: LEVOTHYROXINE
  12. MELATONIN [Concomitant]
     Active Substance: MELATONIN
  13. NARCAN [Concomitant]
     Active Substance: NALOXONE HYDROCHLORIDE
  14. OPIUM [Concomitant]
     Active Substance: OPIUM
  15. OXYCODONE [Concomitant]
     Active Substance: OXYCODONE
  16. PEPTO-BISMOL [Concomitant]
     Active Substance: BISMUTH SUBSALICYLATE
  17. PANTOPRAZOLE [Concomitant]
     Active Substance: PANTOPRAZOLE
  18. PREMARIN [Concomitant]
     Active Substance: ESTROGENS, CONJUGATED
  19. MINERALS\VITAMINS [Concomitant]
     Active Substance: MINERALS\VITAMINS
  20. SPIRONOLACTONE [Concomitant]
     Active Substance: SPIRONOLACTONE
  21. HERBALS\TURMERIC [Concomitant]
     Active Substance: HERBALS\TURMERIC
  22. VITAMIN D3 [Concomitant]
     Active Substance: CHOLECALCIFEROL
  23. XARELTO [Concomitant]
     Active Substance: RIVAROXABAN

REACTIONS (1)
  - Blood potassium decreased [None]
